FAERS Safety Report 9320958 (Version 1)
Quarter: 2013Q2

REPORT INFORMATION
  Report Type: Spontaneous
  Country: US (occurrence: None)
  Receive Date: 20130529
  Receipt Date: 20130529
  Transmission Date: 20140414
  Serious: No
  Sender: FDA-Public Use
  Company Number: None

PATIENT
  Age: 53 Year
  Sex: Male
  Weight: 72.7 kg

DRUGS (1)
  1. RIFAXIMIN [Suspect]
     Dosage: MG PO
     Dates: start: 20121028, end: 20130415

REACTIONS (1)
  - Eosinophilia [None]
